FAERS Safety Report 14679881 (Version 1)
Quarter: 2018Q1

REPORT INFORMATION
  Report Type: Spontaneous
  Country: US (occurrence: US)
  Receive Date: 20180325
  Receipt Date: 20180325
  Transmission Date: 20180509
  Serious: No
  Sender: FDA-Public Use
  Company Number: None

PATIENT
  Age: 39 Year
  Sex: Female

DRUGS (3)
  1. ICE [Concomitant]
     Active Substance: MENTHOL
  2. MULTIVITAMIN [Concomitant]
     Active Substance: VITAMINS
  3. ADVAIR DISKUS [Suspect]
     Active Substance: FLUTICASONE PROPIONATE\SALMETEROL XINAFOATE
     Indication: ASTHMA
     Route: 055
     Dates: start: 20180322, end: 20180325

REACTIONS (6)
  - Condition aggravated [None]
  - Insurance issue [None]
  - Cough [None]
  - Palpitations [None]
  - Asthma [None]
  - Product substitution issue [None]

NARRATIVE: CASE EVENT DATE: 20180325
